FAERS Safety Report 15958920 (Version 1)
Quarter: 2019Q1

REPORT INFORMATION
  Report Type: Report from Study
  Country: None (occurrence: BR)
  Receive Date: 20190214
  Receipt Date: 20190214
  Transmission Date: 20190417
  Serious: Yes (Other)
  Sender: FDA-Public Use
  Company Number: BR-ABBVIE-19K-020-2658990-00

PATIENT
  Age: 74 Year
  Sex: Female

DRUGS (2)
  1. HUMIRA [Suspect]
     Active Substance: ADALIMUMAB
     Indication: RHEUMATOID ARTHRITIS
     Route: 058
     Dates: start: 20090820
  2. TUNTA [Concomitant]
     Indication: CARDIAC DISORDER

REACTIONS (7)
  - Contusion [Unknown]
  - Contusion [Recovered/Resolved]
  - Product administered at inappropriate site [Unknown]
  - Cardiac disorder [Unknown]
  - Hypoaesthesia [Recovered/Resolved]
  - Deafness [Not Recovered/Not Resolved]
  - Nerve compression [Unknown]

NARRATIVE: CASE EVENT DATE: 201802
